FAERS Safety Report 24970982 (Version 1)
Quarter: 2025Q1

REPORT INFORMATION
  Report Type: Spontaneous
  Country: IT (occurrence: IT)
  Receive Date: 20250214
  Receipt Date: 20250214
  Transmission Date: 20250409
  Serious: Yes (Hospitalization, Other)
  Sender: GLAXOSMITHKLINE
  Company Number: IT-GSK-IT2025EME016165

PATIENT

DRUGS (4)
  1. ZEJULA [Suspect]
     Active Substance: NIRAPARIB
     Indication: Ovarian cancer stage III
     Dosage: 200 MG, QD
     Dates: start: 20241210, end: 20241231
  2. OMEPRAZOLE [Concomitant]
     Active Substance: OMEPRAZOLE
     Indication: Product used for unknown indication
  3. OLMESARTAN [Concomitant]
     Active Substance: OLMESARTAN
     Indication: Product used for unknown indication
  4. BARNIDIPINE [Concomitant]
     Active Substance: BARNIDIPINE
     Indication: Product used for unknown indication

REACTIONS (2)
  - Pancytopenia [Recovering/Resolving]
  - Retinal haemorrhage [Recovering/Resolving]
